FAERS Safety Report 14386628 (Version 2)
Quarter: 2018Q4

REPORT INFORMATION
  Report Type: Spontaneous
  Country: US (occurrence: US)
  Receive Date: 20180115
  Receipt Date: 20181116
  Transmission Date: 20190204
  Serious: Yes (Other)
  Sender: FDA-Public Use
  Company Number: US-SA-2017SA094730

PATIENT
  Age: 53 Year
  Sex: Female
  Weight: 78.6 kg

DRUGS (10)
  1. TAXOTERE [Suspect]
     Active Substance: DOCETAXEL
     Dosage: 150 MG,Q3W
     Route: 042
     Dates: start: 20131023, end: 20131023
  2. MOTRIN [Concomitant]
     Active Substance: IBUPROFEN
     Dosage: UNK UNK,UNK
     Route: 065
     Dates: start: 20080415
  3. LODINE [Concomitant]
     Active Substance: ETODOLAC
     Dosage: UNK UNK,UNK
     Route: 065
     Dates: start: 20080902, end: 20150115
  4. MINOCIN [Concomitant]
     Active Substance: MINOCYCLINE HYDROCHLORIDE
     Dosage: UNK UNK,UNK
     Route: 065
     Dates: start: 20080808
  5. OMEPRAZOLE. [Concomitant]
     Active Substance: OMEPRAZOLE
     Dosage: UNK UNK,UNK
     Route: 065
     Dates: start: 20100924, end: 20140813
  6. GLICLAZIDE [Concomitant]
     Active Substance: GLICLAZIDE
     Dosage: UNK UNK,UNK
     Route: 065
     Dates: start: 20090209
  7. TAXOTERE [Suspect]
     Active Substance: DOCETAXEL
     Indication: BREAST CANCER FEMALE
     Dosage: 150 MG,Q3W
     Route: 042
     Dates: start: 20130815, end: 20130815
  8. CYTOXAN [Concomitant]
     Active Substance: CYCLOPHOSPHAMIDE
     Dosage: UNK UNK,Q3W
     Route: 065
  9. CYTOXAN [Concomitant]
     Active Substance: CYCLOPHOSPHAMIDE
     Dosage: UNK UNK,Q3W
     Route: 065
  10. NORCO [Concomitant]
     Active Substance: ACETAMINOPHEN\HYDROCODONE BITARTRATE
     Dosage: UNK UNK,UNK
     Route: 065
     Dates: start: 20140312, end: 20140603

REACTIONS (6)
  - Anxiety [Unknown]
  - Alopecia [Recovering/Resolving]
  - Emotional distress [Unknown]
  - Pain [Unknown]
  - Impaired quality of life [Unknown]
  - Psychological trauma [Unknown]

NARRATIVE: CASE EVENT DATE: 20140423
